FAERS Safety Report 7323183-2 (Version None)
Quarter: 2011Q1

REPORT INFORMATION
  Report Type: 
  Country: None (occurrence: None)
  Receive Date: 20110301
  Receipt Date: 20110223
  Transmission Date: 20110831
  Serious: Yes (Other)
  Sender: FDA-Public Use
  Company Number: US-PFIZER INC-2011040151

PATIENT
  Sex: Male
  Weight: 62.585 kg

DRUGS (4)
  1. CLOBETASOL [Concomitant]
     Dosage: UNK
  2. ACETAMINOPHEN [Concomitant]
     Dosage: UNK
  3. CHANTIX [Suspect]
     Indication: SMOKING CESSATION THERAPY
     Dosage: 0.5 MG, 1X/DAY
     Route: 048
     Dates: start: 20110201, end: 20110210
  4. LEXAPRO [Concomitant]
     Dosage: UNK

REACTIONS (6)
  - ACTIVITIES OF DAILY LIVING IMPAIRED [None]
  - OCULAR HYPERAEMIA [None]
  - RASH [None]
  - EYE SWELLING [None]
  - EYE PRURITUS [None]
  - URTICARIA [None]
